FAERS Safety Report 7418016-X (Version None)
Quarter: 2011Q2

REPORT INFORMATION
  Report Type: 
  Country: None (occurrence: None)
  Receive Date: 20110415
  Receipt Date: 20110404
  Transmission Date: 20111010
  Serious: Yes (Other)
  Sender: FDA-Public Use
  Company Number: FR-ROCHE-768922

PATIENT
  Age: 50 Year
  Sex: Female

DRUGS (2)
  1. TRASTUZUMAB [Suspect]
     Dosage: DISCONTINUED FOR 3 MONTHS
     Route: 065
  2. TRASTUZUMAB [Suspect]
     Dosage: REINTRODUCED.
     Route: 065

REACTIONS (2)
  - MACULAR ISCHAEMIA [None]
  - VISUAL ACUITY REDUCED [None]
